FAERS Safety Report 6027456-5 (Version None)
Quarter: 2009Q1

REPORT INFORMATION
  Report Type: 
  Country: None (occurrence: None)
  Receive Date: 20090105
  Receipt Date: 20081223
  Transmission Date: 20090719
  Serious: Yes (Hospitalization)
  Sender: FDA-Public Use
  Company Number: JP-SANOFI-SYNTHELABO-A01200816546

PATIENT
  Sex: Male

DRUGS (7)
  1. LOXEBERON [Concomitant]
     Dates: start: 20070101, end: 20080430
  2. MAGNESIUM OXIDE [Concomitant]
     Dates: start: 20070101, end: 20080430
  3. RHYTHMY [Concomitant]
     Dates: start: 20070101, end: 20080430
  4. AVASTIN [Suspect]
     Indication: COLON CANCER METASTATIC
     Dosage: 5 MG/KG
     Route: 041
  5. CALCIUM LEVOFOLINATE [Suspect]
     Indication: DRUG USE FOR UNKNOWN INDICATION
     Dosage: UNK
     Route: 041
  6. FLUOROURACIL [Suspect]
     Indication: DRUG USE FOR UNKNOWN INDICATION
     Dosage: UNK
     Route: 042
  7. ELPLAT [Suspect]
     Indication: DRUG USE FOR UNKNOWN INDICATION
     Dosage: UNK
     Route: 041
     Dates: start: 20080204, end: 20080204

REACTIONS (1)
  - ACUTE MYOCARDIAL INFARCTION [None]
